FAERS Safety Report 7528813-8 (Version None)
Quarter: 2011Q2

REPORT INFORMATION
  Report Type: 
  Country: None (occurrence: None)
  Receive Date: 20110607
  Receipt Date: 20100512
  Transmission Date: 20111010
  Serious: No
  Sender: FDA-Public Use
  Company Number: US-ASTRAZENECA-2010SE22565

PATIENT
  Age: 54 Year
  Sex: Female

DRUGS (1)
  1. PRILOSEC OTC [Suspect]
     Route: 048

REACTIONS (4)
  - INFECTION [None]
  - DRUG INEFFECTIVE [None]
  - BONE LOSS [None]
  - IMPAIRED HEALING [None]
